FAERS Safety Report 10302274 (Version 1)
Quarter: 2014Q3

REPORT INFORMATION
  Report Type: Spontaneous
  Country: US (occurrence: US)
  Receive Date: 20140714
  Receipt Date: 20140714
  Transmission Date: 20150326
  Serious: No
  Sender: FDA-Public Use
  Company Number: US-BAUSCH-BL-2013-005991

PATIENT
  Age: 84 Year
  Sex: Female

DRUGS (2)
  1. BESIVANCE [Suspect]
     Active Substance: BESIFLOXACIN
     Indication: EYE DISCHARGE
     Dosage: 1 DROP; THREE TIMES DAILY; LEFT EYE
     Route: 047
     Dates: start: 20131104
  2. BESIVANCE [Suspect]
     Active Substance: BESIFLOXACIN
     Indication: BLEPHARITIS

REACTIONS (3)
  - Condition aggravated [Not Recovered/Not Resolved]
  - Off label use [Not Recovered/Not Resolved]
  - Eye discharge [Not Recovered/Not Resolved]

NARRATIVE: CASE EVENT DATE: 20131104
